FAERS Safety Report 17024426 (Version 2)
Quarter: 2019Q4

REPORT INFORMATION
  Report Type: Report from Study
  Country: CH (occurrence: CH)
  Receive Date: 20191113
  Receipt Date: 20191203
  Transmission Date: 20200122
  Serious: No
  Sender: FDA-Public Use
  Company Number: CH-BEH-2019102208

PATIENT
  Age: 68 Year
  Sex: Male
  Weight: 82 kg

DRUGS (8)
  1. HIZENTRA [Suspect]
     Active Substance: HUMAN IMMUNOGLOBULIN G
     Dosage: UNK
     Route: 065
     Dates: start: 20190513, end: 20190513
  2. HIZENTRA [Suspect]
     Active Substance: HUMAN IMMUNOGLOBULIN G
     Indication: AUTOIMMUNE MYOSITIS
     Dosage: 50 ML, BIW
     Route: 065
     Dates: start: 20190507
  3. HIZENTRA [Suspect]
     Active Substance: HUMAN IMMUNOGLOBULIN G
     Dosage: 50 MILLILITER, TOTAL
     Route: 065
     Dates: start: 20191129
  4. HIZENTRA [Suspect]
     Active Substance: HUMAN IMMUNOGLOBULIN G
     Dosage: 50 ML, UNK
     Route: 058
     Dates: start: 20190510
  5. OLMESARTAN [Concomitant]
     Active Substance: OLMESARTAN
  6. METOJECT [Concomitant]
     Active Substance: METHOTREXATE SODIUM
     Dosage: 12.5 MG, QW
     Route: 065
  7. CORTISONE [Concomitant]
     Active Substance: CORTISONE
     Dosage: 5 MG, QD
     Route: 065
  8. PANTOPRAZOLE [Concomitant]
     Active Substance: PANTOPRAZOLE

REACTIONS (19)
  - Administration site paraesthesia [Unknown]
  - Administration site paraesthesia [Unknown]
  - No adverse event [Unknown]
  - Administration site nodule [Unknown]
  - Administration site pain [Unknown]
  - Administration site erythema [Unknown]
  - Injection site extravasation [Unknown]
  - Administration site extravasation [Unknown]
  - Product use in unapproved indication [Unknown]
  - Administration site paraesthesia [Unknown]
  - Administration site nodule [Unknown]
  - Injection site nodule [Unknown]
  - Injection site nodule [Unknown]
  - Injection site erythema [Unknown]
  - Administration site paraesthesia [Unknown]
  - Administration site paraesthesia [Unknown]
  - Injection site haematoma [Recovered/Resolved]
  - Administration site erythema [Not Recovered/Not Resolved]
  - Administration site nodule [Unknown]

NARRATIVE: CASE EVENT DATE: 20190507
